FAERS Safety Report 7361028-5 (Version None)
Quarter: 2011Q1

REPORT INFORMATION
  Report Type: 
  Country: None (occurrence: None)
  Receive Date: 20110318
  Receipt Date: 20110315
  Transmission Date: 20110831
  Serious: Yes (Hospitalization, Other)
  Sender: FDA-Public Use
  Company Number: IT-ROCHE-741874

PATIENT
  Sex: Female
  Weight: 25.5 kg

DRUGS (1)
  1. TOCILIZUMAB [Suspect]
     Indication: CASTLEMAN'S DISEASE
     Route: 042
     Dates: start: 20100930

REACTIONS (3)
  - MIGRAINE [None]
  - HEADACHE [None]
  - PACHYMENINGITIS [None]
